FAERS Safety Report 8932724 (Version 1)
Quarter: 2012Q4

REPORT INFORMATION
  Report Type: Report from Study
  Country: CN (occurrence: CN)
  Receive Date: 20121129
  Receipt Date: 20121129
  Transmission Date: 20130627
  Serious: Yes (Other)
  Sender: FDA-Public Use
  Company Number: CN-US-EMD SERONO, INC.-7171670

PATIENT
  Age: 38 Year
  Sex: Female
  Weight: 60 kg

DRUGS (2)
  1. GONAL-F [Suspect]
     Indication: IN VITRO FERTILISATION
     Dates: start: 20110416, end: 20110428
  2. LUVERIS [Suspect]
     Indication: IN VITRO FERTILISATION
     Route: 042
     Dates: start: 20110416, end: 20110428

REACTIONS (1)
  - Abortion spontaneous [Recovered/Resolved]
